FAERS Safety Report 7387321-8 (Version None)
Quarter: 2011Q1

REPORT INFORMATION
  Report Type: 
  Country: None (occurrence: None)
  Receive Date: 20110331
  Receipt Date: 20110329
  Transmission Date: 20110831
  Serious: Yes (Other)
  Sender: FDA-Public Use
  Company Number: US-BRISTOL-MYERS SQUIBB COMPANY-15642952

PATIENT
  Age: 69 Year
  Weight: 91 kg

DRUGS (11)
  1. ASPIRIN [Concomitant]
     Indication: PAIN
  2. PERCOCET [Concomitant]
     Indication: PAIN
  3. COUMADIN [Suspect]
     Indication: CEREBROVASCULAR ACCIDENT
  4. GLUCOSAMINE [Concomitant]
     Indication: PAIN
  5. LANSOPRAZOLE [Concomitant]
     Indication: PAIN
  6. CARDURA [Concomitant]
     Indication: PAIN
  7. MACAINE [Concomitant]
     Indication: PAIN
  8. NORVASC [Concomitant]
     Indication: PAIN
  9. CARAFATE [Concomitant]
     Indication: PAIN
  10. ACETAMINOPHEN [Concomitant]
     Indication: PAIN
  11. WARFARIN SODIUM [Suspect]
     Indication: CEREBROVASCULAR ACCIDENT
     Dates: start: 20110114, end: 20110318

REACTIONS (7)
  - INTERNATIONAL NORMALISED RATIO FLUCTUATION [None]
  - HYPERSENSITIVITY [None]
  - CHILLS [None]
  - ASTHENIA [None]
  - CEREBRAL ISCHAEMIA [None]
  - VOMITING [None]
  - MYALGIA [None]
